FAERS Safety Report 11717667 (Version 1)
Quarter: 2015Q4

REPORT INFORMATION
  Report Type: Spontaneous
  Country: US (occurrence: US)
  Receive Date: 20151110
  Receipt Date: 20151110
  Transmission Date: 20160304
  Serious: Yes (Hospitalization)
  Sender: FDA-Public Use
  Company Number: US-TEVA-549132USA

PATIENT
  Sex: Female

DRUGS (1)
  1. OLANZAPINE. [Suspect]
     Active Substance: OLANZAPINE
     Dosage: 20 MILLIGRAM DAILY;
     Route: 065

REACTIONS (7)
  - Drug ineffective [Unknown]
  - Anxiety [Unknown]
  - Confusional state [Unknown]
  - Muscular weakness [Unknown]
  - Headache [Unknown]
  - Drug resistance [Unknown]
  - Restlessness [Unknown]
